FAERS Safety Report 23828369 (Version 2)
Quarter: 2024Q2

REPORT INFORMATION
  Report Type: Other
  Country: EG (occurrence: EG)
  Receive Date: 20240508
  Receipt Date: 20240611
  Transmission Date: 20240715
  Serious: Yes (Other)
  Sender: FDA-Public Use
  Company Number: EG-002147023-NVSC2024EG090029

PATIENT
  Age: 43 Year
  Sex: Female

DRUGS (4)
  1. XOLAIR [Suspect]
     Active Substance: OMALIZUMAB
     Indication: Urticaria
     Dosage: 2 DOSAGE FORM, QMO (2 XOLAIR VIALS AT ONCE EVERY MONTH), START DATE: OCT OR NOV 2023
     Route: 058
     Dates: start: 2023
  2. IMIPRAMINE [Concomitant]
     Active Substance: IMIPRAMINE
     Indication: Depression
     Dosage: 1 DOSAGE FORM, QD (BEFORE XOLAIR, THE REPORTER DIDN^T SPECIFY THE EXACT DATE)
  3. EBASTINE [Concomitant]
     Active Substance: EBASTINE
     Indication: Urticaria
     Dosage: 2 DOSAGE FORM (2 TABS), QD (START DATE: OCT OR NOV 2023) //2023
     Dates: start: 2023
  4. OSSOFORTIN (EGYPT) [Concomitant]
     Indication: Vitamin D deficiency
     Dosage: 1 DOSAGE FORM, QD (BEFORE XOLAIR, THE REPORTER DIDN^T SPECIFY THE EXACT DATE)

REACTIONS (4)
  - Blood immunoglobulin E increased [Unknown]
  - Drug ineffective [Unknown]
  - Inappropriate schedule of product administration [Unknown]
  - Product availability issue [Unknown]

NARRATIVE: CASE EVENT DATE: 20240401
